FAERS Safety Report 25205151 (Version 2)
Quarter: 2025Q2

REPORT INFORMATION
  Report Type: Spontaneous
  Country: FR (occurrence: FR)
  Receive Date: 20250417
  Receipt Date: 20250502
  Transmission Date: 20250717
  Serious: Yes (Congenital Anomaly, Other)
  Sender: UCB
  Company Number: None

PATIENT
  Age: 2 Year
  Sex: Male
  Weight: 13 kg

DRUGS (1)
  1. KEPPRA [Suspect]
     Active Substance: LEVETIRACETAM
     Indication: Epilepsy
     Route: 064
     Dates: start: 20211228

REACTIONS (6)
  - Ventricular septal defect [Not Recovered/Not Resolved]
  - Atrial septal defect [Not Recovered/Not Resolved]
  - Cryptorchism [Not Recovered/Not Resolved]
  - Deafness [Not Recovered/Not Resolved]
  - Failure to thrive [Not Recovered/Not Resolved]
  - Exposure during pregnancy [Unknown]

NARRATIVE: CASE EVENT DATE: 20211228
